FAERS Safety Report 25331331 (Version 1)
Quarter: 2025Q2

REPORT INFORMATION
  Report Type: Spontaneous
  Country: IT (occurrence: IT)
  Receive Date: 20250519
  Receipt Date: 20250519
  Transmission Date: 20250716
  Serious: Yes (Other)
  Sender: BIOVITRUM
  Company Number: IT-BIOVITRUM-2025-IT-006844

PATIENT
  Sex: Male

DRUGS (1)
  1. EMAPALUMAB [Suspect]
     Active Substance: EMAPALUMAB
     Indication: Familial haemophagocytic lymphohistiocytosis

REACTIONS (5)
  - Seizure [Unknown]
  - Familial haemophagocytic lymphohistiocytosis [Unknown]
  - Condition aggravated [Unknown]
  - Off label use [Unknown]
  - Hepatomegaly [Unknown]
